FAERS Safety Report 19890263 (Version 1)
Quarter: 2021Q3

REPORT INFORMATION
  Report Type: Spontaneous
  Country: ES (occurrence: ES)
  Receive Date: 20210928
  Receipt Date: 20210928
  Transmission Date: 20211014
  Serious: Yes (Hospitalization)
  Sender: FDA-Public Use
  Company Number: ES-ROCHE-2916531

PATIENT
  Age: 18 Month
  Sex: Male

DRUGS (7)
  1. NUTROPIN AQ [Suspect]
     Active Substance: SOMATROPIN
     Indication: OFF LABEL USE
  2. NUTROPIN AQ [Suspect]
     Active Substance: SOMATROPIN
     Indication: CEREBRAL PALSY
  3. NUTROPIN AQ [Suspect]
     Active Substance: SOMATROPIN
     Indication: GROWTH DISORDER
     Dosage: 0.5 MG/PER DAY
     Route: 065
     Dates: start: 202107, end: 20210816
  4. OMEPRAZOLE. [Concomitant]
     Active Substance: OMEPRAZOLE
     Dosage: 4 ML EACH 24 HOURS.
  5. BUDESONIDE. [Concomitant]
     Active Substance: BUDESONIDE
     Dosage: 2 PUFFS EVERY 12 HOURS
  6. SALBUTAMOL [Concomitant]
     Active Substance: ALBUTEROL
     Dosage: EACH 24 HOURS
  7. ARTANE [Concomitant]
     Active Substance: TRIHEXYPHENIDYL HYDROCHLORIDE
     Dosage: LITTLE PILL, 3/4 PARTS EVERY 12 HOURS

REACTIONS (4)
  - Product storage error [Unknown]
  - Product dose omission issue [Unknown]
  - Human bocavirus infection [Unknown]
  - Off label use [Unknown]

NARRATIVE: CASE EVENT DATE: 20210815
